FAERS Safety Report 25246968 (Version 2)
Quarter: 2025Q3

REPORT INFORMATION
  Report Type: Report from Study
  Country: US (occurrence: US)
  Receive Date: 20250428
  Receipt Date: 20250703
  Transmission Date: 20251020
  Serious: Yes (Other)
  Sender: NOVARTIS
  Company Number: US-002147023-NVSC2025US067566

PATIENT
  Sex: Female

DRUGS (1)
  1. KESIMPTA [Suspect]
     Active Substance: OFATUMUMAB
     Indication: Product used for unknown indication
     Route: 065
     Dates: start: 20250420

REACTIONS (6)
  - Multiple sclerosis relapse [Recovering/Resolving]
  - Loss of consciousness [Recovering/Resolving]
  - Fatigue [Unknown]
  - Balance disorder [Unknown]
  - Somnolence [Unknown]
  - Asthenia [Unknown]
